FAERS Safety Report 5307029-X (Version None)
Quarter: 2007Q2

REPORT INFORMATION
  Report Type: 
  Country: None (occurrence: None)
  Receive Date: 20070425
  Receipt Date: 20070418
  Transmission Date: 20071010
  Serious: Yes (Other)
  Sender: FDA-Public Use
  Company Number: IE-ROCHE-445151

PATIENT
  Age: 24 Year
  Sex: Male

DRUGS (1)
  1. ROACCUTANE [Suspect]
     Indication: ACNE
     Dosage: DOSAGE REGIMEN REPORTED AS TWICE DAILY.
     Route: 048
     Dates: start: 20030615, end: 20030615

REACTIONS (5)
  - ALOPECIA [None]
  - ASTHENIA [None]
  - DRY SKIN [None]
  - HEART RATE IRREGULAR [None]
  - SOMNOLENCE [None]
